FAERS Safety Report 9662937 (Version 2)
Quarter: 2013Q4

REPORT INFORMATION
  Report Type: Spontaneous
  Country: US (occurrence: US)
  Receive Date: 20131031
  Receipt Date: 20131031
  Transmission Date: 20140711
  Serious: No
  Sender: FDA-Public Use
  Company Number: US-PURDUE-USA-2011-0063245

PATIENT
  Age: 30 Year
  Sex: Male
  Weight: 90.7 kg

DRUGS (2)
  1. OXYCONTIN (NDA 22-272) [Suspect]
     Indication: PAIN
     Dosage: 40 MG, BID
     Route: 048
     Dates: start: 20101001
  2. OXYCODONE HCL IR CAPSULES [Concomitant]
     Indication: PAIN
     Dosage: 30 MG, Q4- 6H

REACTIONS (8)
  - Drug withdrawal syndrome [Not Recovered/Not Resolved]
  - Medication residue present [Not Recovered/Not Resolved]
  - Vomiting [Not Recovered/Not Resolved]
  - Gastric disorder [Not Recovered/Not Resolved]
  - Constipation [Not Recovered/Not Resolved]
  - Inadequate analgesia [Not Recovered/Not Resolved]
  - Drug effect delayed [Not Recovered/Not Resolved]
  - Feeling abnormal [Not Recovered/Not Resolved]
